FAERS Safety Report 5346158-1 (Version None)
Quarter: 2007Q2

REPORT INFORMATION
  Report Type: 
  Country: None (occurrence: None)
  Receive Date: 20070605
  Receipt Date: 20070601
  Transmission Date: 20071010
  Serious: Yes (Death, Other)
  Sender: FDA-Public Use
  Company Number: NL-ASTRAZENECA-2007AC00910

PATIENT
  Age: 30984 Day
  Sex: Female

DRUGS (9)
  1. ARIMIDEX [Suspect]
     Indication: BREAST CANCER METASTATIC
     Route: 048
     Dates: start: 20070507
  2. ARIMIDEX [Suspect]
     Route: 048
     Dates: start: 20070507
  3. ATENOLOLUM [Concomitant]
  4. TRIAMTEREEN/HYDROCHLOORTHIAZIDE [Concomitant]
     Dosage: 50/25 MG
  5. OMEPRAZOLUM [Concomitant]
  6. LACTULOSI [Concomitant]
     Dosage: 500 MG/G
  7. TIMOLOL MALEATE [Concomitant]
     Route: 047
  8. ACULAR [Concomitant]
     Dosage: 5 MG / ML
     Route: 047
  9. SULFASALAZINE [Concomitant]

REACTIONS (1)
  - ANGIOEDEMA [None]
